FAERS Safety Report 9798724 (Version 1)
Quarter: 2014Q1

REPORT INFORMATION
  Report Type: Spontaneous
  Country: US (occurrence: US)
  Receive Date: 20140106
  Receipt Date: 20140106
  Transmission Date: 20141002
  Serious: No
  Sender: FDA-Public Use
  Company Number: US-GILEAD-2010-0029931

PATIENT
  Sex: Female

DRUGS (12)
  1. LETAIRIS [Suspect]
     Indication: PULMONARY ARTERIAL HYPERTENSION
     Route: 048
     Dates: start: 20100607, end: 20100613
  2. FLOVENT [Concomitant]
  3. PROAIR HFA [Concomitant]
  4. WARFARIN [Concomitant]
  5. ACCOLATE [Concomitant]
  6. LEVOTHYROXIN [Concomitant]
  7. LISINOPRIL [Concomitant]
  8. K-DUR [Concomitant]
  9. BENADRYL [Concomitant]
  10. LASIX [Concomitant]
  11. XANAX [Concomitant]
  12. INSPRA [Concomitant]

REACTIONS (1)
  - Fluid retention [Unknown]
